FAERS Safety Report 5272981-8 (Version None)
Quarter: 2007Q1

REPORT INFORMATION
  Report Type: 
  Country: None (occurrence: None)
  Receive Date: 20070322
  Receipt Date: 20070319
  Transmission Date: 20070707
  Serious: Yes (Hospitalization)
  Sender: FDA-Public Use
  Company Number: FR-PFIZER INC-2007020865

PATIENT
  Age: 75 Year
  Sex: Male

DRUGS (4)
  1. ZOLOFT [Suspect]
     Dosage: TEXT:UNKNOWN
     Route: 048
     Dates: start: 20070122, end: 20070205
  2. PLAVIX [Suspect]
     Dosage: DAILY DOSE:75MG
     Route: 048
     Dates: start: 20010101, end: 20070205
  3. AUGMENTIN '125' [Concomitant]
  4. VERAPAMIL [Concomitant]

REACTIONS (5)
  - CONDITION AGGRAVATED [None]
  - DUODENAL ULCER [None]
  - GASTROINTESTINAL HAEMORRHAGE [None]
  - OESOPHAGITIS [None]
  - ULCER HAEMORRHAGE [None]
